FAERS Safety Report 4916148-9 (Version None)
Quarter: 2006Q1

REPORT INFORMATION
  Report Type: 
  Country: None (occurrence: None)
  Receive Date: 20060217
  Receipt Date: 20051001
  Transmission Date: 20060701
  Serious: Yes (Hospitalization)
  Sender: FDA-Public Use
  Company Number: PR-MERCK-0510USA01786

PATIENT
  Age: 57 Year
  Sex: Male
  Weight: 107 kg

DRUGS (9)
  1. VIOXX [Suspect]
     Indication: MYALGIA
     Route: 048
     Dates: start: 20020101, end: 20040101
  2. ASPIRIN [Concomitant]
     Route: 065
  3. LIPITOR [Concomitant]
     Route: 065
  4. PLAVIX [Concomitant]
     Route: 065
  5. COREG [Concomitant]
     Route: 065
  6. PRINIVIL [Concomitant]
     Route: 048
  7. LASIX [Concomitant]
     Route: 065
  8. AMBIEN [Concomitant]
     Route: 065
  9. CELEBREX [Concomitant]
     Route: 065

REACTIONS (4)
  - CARDIAC DISORDER [None]
  - CARDIAC FAILURE [None]
  - DEPRESSION [None]
  - TACHYCARDIA [None]
